FAERS Safety Report 5156872-9 (Version None)
Quarter: 2006Q4

REPORT INFORMATION
  Report Type: 
  Country: None (occurrence: None)
  Receive Date: 20061115
  Receipt Date: 20061103
  Transmission Date: 20070319
  Serious: Yes (Hospitalization)
  Sender: FDA-Public Use
  Company Number: TIF2006A00069

PATIENT
  Age: 72 Year
  Sex: Female

DRUGS (9)
  1. SPORANOX [Suspect]
     Indication: FUNGAL SKIN INFECTION
     Dosage: 300 MG ORAL
     Route: 048
     Dates: start: 20060612, end: 20060627
  2. TENORMIN [Concomitant]
  3. ELOPRAM (CITALOPRAM) [Concomitant]
  4. XANAX [Concomitant]
  5. ESKIM (OMEGA-3 TRIGLYCERIDES) [Concomitant]
  6. INEGY (SIMVASTATIN, EZETIMIBE) [Concomitant]
  7. ENAPREN (ENALAPRIL MALEATE) [Concomitant]
  8. TRAZODONE HCL [Concomitant]
  9. ASPIRIN [Concomitant]

REACTIONS (2)
  - ACUTE CORONARY SYNDROME [None]
  - ACUTE PULMONARY OEDEMA [None]
